FAERS Safety Report 10185077 (Version 1)
Quarter: 2014Q2

REPORT INFORMATION
  Report Type: Spontaneous
  Country: US (occurrence: None)
  Receive Date: 20140520
  Receipt Date: 20140520
  Transmission Date: 20141212
  Serious: Yes (Disabling)
  Sender: FDA-Public Use
  Company Number: None

PATIENT
  Age: 59 Year
  Sex: 0
  Weight: 95.26 kg

DRUGS (1)
  1. LEVOFLOXACIN 500MG ZYDUS [Suspect]
     Indication: SINUSITIS
     Dosage: 1
     Route: 048
     Dates: start: 20140324, end: 20140409

REACTIONS (5)
  - Pain [None]
  - Myalgia [None]
  - Gait disturbance [None]
  - Activities of daily living impaired [None]
  - Dysstasia [None]
